FAERS Safety Report 5611246-9 (Version None)
Quarter: 2008Q1

REPORT INFORMATION
  Report Type: 
  Country: None (occurrence: None)
  Receive Date: 20080201
  Receipt Date: 20080124
  Transmission Date: 20080703
  Serious: Yes (Other)
  Sender: FDA-Public Use
  Company Number: PHHY2008CA01029

PATIENT

DRUGS (2)
  1. DIOVAN [Suspect]
     Route: 048
  2. ACE INHIBITOR NOS [Concomitant]

REACTIONS (3)
  - BLOOD PRESSURE INCREASED [None]
  - MICROALBUMINURIA [None]
  - URINE ALBUMIN/CREATININE RATIO [None]
